FAERS Safety Report 12983546 (Version 2)
Quarter: 2016Q4

REPORT INFORMATION
  Report Type: Spontaneous
  Country: US (occurrence: US)
  Receive Date: 20161129
  Receipt Date: 20161223
  Transmission Date: 20170207
  Serious: Yes (Hospitalization)
  Sender: FDA-Public Use
  Company Number: US-ASTRAZENECA-2016SF24618

PATIENT
  Age: 75 Year
  Sex: Female
  Weight: 71.2 kg

DRUGS (10)
  1. CELEBREX [Concomitant]
     Active Substance: CELECOXIB
     Indication: ARTHRITIS
     Dosage: 200 MG IN AM, 100 MG IN PM, 3 YEARS
     Route: 048
  2. DIAZEPAM. [Concomitant]
     Active Substance: DIAZEPAM
     Indication: SLEEP DISORDER
     Route: 048
  3. BYDUREON [Suspect]
     Active Substance: EXENATIDE
     Indication: HYPOGLYCAEMIA
     Route: 058
  4. BENECAR [Concomitant]
     Indication: BLOOD PRESSURE ABNORMAL
     Route: 048
  5. MYRBETRIQ [Concomitant]
     Active Substance: MIRABEGRON
     Indication: HYPERTONIC BLADDER
     Route: 048
  6. ACTOS [Concomitant]
     Active Substance: PIOGLITAZONE HYDROCHLORIDE
     Indication: HYPOGLYCAEMIA
     Route: 048
  7. HYDROCODONE BITARTRATE AND ACETAMINOPHEN [Concomitant]
     Active Substance: ACETAMINOPHEN\HYDROCODONE BITARTRATE
     Indication: SLEEP DISORDER
     Dosage: 10/325 2 MONTHS AS REQUIRED
     Route: 048
  8. BYDUREON [Suspect]
     Active Substance: EXENATIDE
     Indication: HYPOGLYCAEMIA
     Dosage: 2 MG ONCE A WEEK TRAY
     Route: 058
     Dates: start: 2013
  9. BYDUREON [Suspect]
     Active Substance: EXENATIDE
     Indication: HYPOGLYCAEMIA
     Route: 058
     Dates: start: 201611, end: 201611
  10. JANUVIA [Concomitant]
     Active Substance: SITAGLIPTIN PHOSPHATE
     Indication: RENAL DISORDER
     Route: 048

REACTIONS (7)
  - Off label use [Unknown]
  - Product use issue [Unknown]
  - Memory impairment [Not Recovered/Not Resolved]
  - Cerebrovascular accident [Unknown]
  - Device issue [Unknown]
  - Hypertonic bladder [Unknown]
  - Blood glucose increased [Unknown]

NARRATIVE: CASE EVENT DATE: 2014
